FAERS Safety Report 5350853-8 (Version None)
Quarter: 2007Q2

REPORT INFORMATION
  Report Type: 
  Country: None (occurrence: None)
  Receive Date: 20070608
  Receipt Date: 20070606
  Transmission Date: 20071010
  Serious: Yes (Other)
  Sender: FDA-Public Use
  Company Number: A0654479A

PATIENT
  Age: 18 Month
  Sex: Male
  Weight: 11.8 kg

DRUGS (1)
  1. AUGMENTIN '125' [Suspect]
     Indication: TONSILLITIS
     Dosage: 500MG TWICE PER DAY
     Route: 048
     Dates: start: 20070521, end: 20070528

REACTIONS (4)
  - DIARRHOEA [None]
  - GENITAL CANDIDIASIS [None]
  - PYREXIA [None]
  - RASH [None]
